FAERS Safety Report 20646292 (Version 1)
Quarter: 2022Q1

REPORT INFORMATION
  Report Type: Spontaneous
  Country: US (occurrence: US)
  Receive Date: 20220329
  Receipt Date: 20220329
  Transmission Date: 20220423
  Serious: No
  Sender: FDA-Public Use
  Company Number: US-drreddys-SPO/USA/22/0147987

PATIENT
  Age: 38 Year
  Sex: Male

DRUGS (2)
  1. ACCUTANE [Suspect]
     Active Substance: ISOTRETINOIN
     Indication: Product used for unknown indication
     Dosage: RMA ISSUE DATE: 24 JANUARY 2022 05:15:27 PM, 17 FEBRUARY 2022 06:51:45 PM
  2. ZENATANE [Suspect]
     Active Substance: ISOTRETINOIN
     Indication: Product used for unknown indication
     Dosage: RMA ISSUE DATE: 22 NOVEMBER 2021 06:59:02 PM, 22 DECEMBER 2021 01:10:37 PM

REACTIONS (1)
  - Rash [Unknown]
